FAERS Safety Report 11405539 (Version 1)
Quarter: 2015Q3

REPORT INFORMATION
  Report Type: Spontaneous
  Country: DE (occurrence: DE)
  Receive Date: 20150821
  Receipt Date: 20150821
  Transmission Date: 20151125
  Serious: Yes (Hospitalization, Other)
  Sender: FDA-Public Use
  Company Number: DE-GILEAD-2015-0168312

PATIENT
  Age: 64 Year
  Sex: Male
  Weight: 82 kg

DRUGS (13)
  1. HARVONI [Suspect]
     Active Substance: LEDIPASVIR\SOFOSBUVIR
     Indication: ACUTE HEPATITIS C
     Dosage: 1 DF, QD
     Route: 065
     Dates: start: 20150627
  2. CELLCEPT [Concomitant]
     Active Substance: MYCOPHENOLATE MOFETIL\MYCOPHENOLATE MOFETIL HYDROCHLORIDE
     Indication: RENAL TRANSPLANT
     Dosage: UNK
     Dates: start: 20150315
  3. MAGNESIUM [Concomitant]
     Active Substance: MAGNESIUM
  4. TAMSULOSIN [Concomitant]
     Active Substance: TAMSULOSIN
  5. BICANORM [Concomitant]
     Active Substance: SODIUM BICARBONATE
  6. BISOPROLOL [Concomitant]
     Active Substance: BISOPROLOL
  7. RAMIPRIL. [Concomitant]
     Active Substance: RAMIPRIL
  8. CINACALCET [Concomitant]
     Active Substance: CINACALCET
  9. DECORTIN [Concomitant]
     Active Substance: PREDNISONE
     Indication: RENAL TRANSPLANT
  10. RANITIDIN [Concomitant]
     Active Substance: RANITIDINE HYDROCHLORIDE
  11. PENTAMIDINA [Concomitant]
  12. PROGRAF [Concomitant]
     Active Substance: TACROLIMUS\TACROLIMUS ANHYDROUS
     Indication: RENAL TRANSPLANT
     Dosage: UNK UNKNOWN, UNK
     Route: 065
     Dates: start: 20150315
  13. TORASEMID [Concomitant]
     Active Substance: TORSEMIDE

REACTIONS (1)
  - Kidney transplant rejection [Not Recovered/Not Resolved]

NARRATIVE: CASE EVENT DATE: 20150804
